FAERS Safety Report 4593967-2 (Version None)
Quarter: 2005Q1

REPORT INFORMATION
  Report Type: 
  Country: None (occurrence: None)
  Receive Date: 20050301
  Receipt Date: 20050221
  Transmission Date: 20050727
  Serious: Yes (Hospitalization)
  Sender: FDA-Public Use
  Company Number: ES-MERCK-0502ESP00057

PATIENT
  Age: 75 Year
  Sex: Male

DRUGS (11)
  1. MEVACOR [Suspect]
     Indication: HYPERCHOLESTEROLAEMIA
     Route: 048
     Dates: start: 19990525, end: 20010928
  2. ASPIRIN [Concomitant]
     Indication: PROPHYLAXIS
     Route: 048
  3. QUINAPRIL HYDROCHLORIDE [Concomitant]
     Indication: ESSENTIAL HYPERTENSION
     Route: 048
  4. TORSEMIDE [Concomitant]
     Indication: CARDIAC FAILURE CONGESTIVE
     Route: 048
  5. GLYBURIDE [Concomitant]
     Indication: DIABETES MELLITUS
     Route: 048
  6. METFORMIN [Concomitant]
     Indication: DIABETES MELLITUS
     Route: 048
  7. ALLOPURINOL [Concomitant]
     Route: 065
  8. OMEPRAZOLE [Concomitant]
     Route: 065
  9. FLUTICASONE PROPIONATE AND SALMETEROL XINAFOATE [Concomitant]
     Route: 065
  10. IPRATROPIUM BROMIDE [Concomitant]
     Route: 065
  11. TERBUTALINE SULFATE [Concomitant]
     Route: 065

REACTIONS (1)
  - MYOSITIS [None]
